FAERS Safety Report 9051873 (Version 1)
Quarter: 2013Q1

REPORT INFORMATION
  Report Type: Spontaneous
  Country: US (occurrence: None)
  Receive Date: 20130130
  Receipt Date: 20130130
  Transmission Date: 20140127
  Serious: Yes (Hospitalization)
  Sender: FDA-Public Use
  Company Number: None

PATIENT
  Age: 60 Year
  Sex: Male
  Weight: 83 kg

DRUGS (14)
  1. PLAVIX [Suspect]
     Indication: CORONARY ARTERY DISEASE
     Route: 048
  2. ASA [Suspect]
     Route: 048
  3. RAMIPRIL [Suspect]
     Route: 048
  4. ALDACTONE [Suspect]
     Route: 048
  5. ALLOPURINOL [Concomitant]
  6. AMIODARONE [Concomitant]
  7. ATORVASTATIN [Concomitant]
  8. CARVEDILOL [Concomitant]
  9. FUROSEMIDE [Concomitant]
  10. GLIPIZIDE XL [Concomitant]
  11. LANTUS [Concomitant]
  12. HUMALOG [Concomitant]
  13. IMDUR [Concomitant]
  14. NTG [Concomitant]

REACTIONS (6)
  - Gastrointestinal haemorrhage [None]
  - Renal failure acute [None]
  - Anaemia [None]
  - Atrioventricular block first degree [None]
  - Bundle branch block right [None]
  - Arteriovenous malformation [None]
